FAERS Safety Report 9203282 (Version 4)
Quarter: 2013Q3

REPORT INFORMATION
  Report Type: Spontaneous
  Country: US (occurrence: US)
  Receive Date: 20130402
  Receipt Date: 20130724
  Transmission Date: 20140515
  Serious: Yes (Hospitalization)
  Sender: FDA-Public Use
  Company Number: US-JNJFOC-20130315645

PATIENT
  Age: 84 Year
  Sex: Male
  Weight: 102.4 kg

DRUGS (5)
  1. ZYTIGA [Suspect]
     Indication: PROSTATE CANCER METASTATIC
     Route: 048
     Dates: start: 20130401
  2. ZYTIGA [Suspect]
     Indication: PROSTATE CANCER METASTATIC
     Dosage: 250MG X 4
     Route: 048
     Dates: start: 201203, end: 201303
  3. PREDNISONE [Suspect]
     Indication: PROSTATE CANCER METASTATIC
     Route: 065
  4. RADIOTHERAPY [Suspect]
     Indication: METASTASES TO SPINE
     Dosage: 3500 CGY
     Route: 065
     Dates: start: 20130218, end: 20130307
  5. RADIOTHERAPY [Suspect]
     Indication: METASTASES TO BONE
     Dosage: 3500 CGY
     Route: 065
     Dates: start: 20130218, end: 20130307

REACTIONS (3)
  - Oesophagitis [Recovered/Resolved]
  - Disease progression [Unknown]
  - Spinal pain [Unknown]
